FAERS Safety Report 9218189 (Version 2)
Quarter: 2013Q2

REPORT INFORMATION
  Report Type: Spontaneous
  Country: FR (occurrence: FR)
  Receive Date: 20130408
  Receipt Date: 20130412
  Transmission Date: 20140414
  Serious: Yes (Other)
  Sender: FDA-Public Use
  Company Number: PHHY2013FR033752

PATIENT
  Age: 30 Year
  Sex: Female
  Weight: 52 kg

DRUGS (2)
  1. LEELOO [Suspect]
     Indication: CONTRACEPTION
     Dosage: 1 DF, QD
     Route: 048
     Dates: start: 20130401
  2. IMUREL [Concomitant]
     Indication: CROHN^S DISEASE

REACTIONS (2)
  - Vaginal haemorrhage [Recovering/Resolving]
  - Vaginal discharge [Recovering/Resolving]
